FAERS Safety Report 5956872-2 (Version None)
Quarter: 2008Q4

REPORT INFORMATION
  Report Type: 
  Country: None (occurrence: None)
  Receive Date: 20081118
  Receipt Date: 20081107
  Transmission Date: 20090506
  Serious: Yes (Other)
  Sender: FDA-Public Use
  Company Number: US-BAXTER-2008BH012098

PATIENT
  Sex: Female

DRUGS (1)
  1. HEPARIN SODIUM INJECTION [Suspect]
     Indication: CATHETERISATION CARDIAC
     Dosage: DOSE UNIT:UNKNOWN
     Route: 065
     Dates: start: 20080103, end: 20080103

REACTIONS (12)
  - AMNESIA [None]
  - CEREBRAL INFARCTION [None]
  - CEREBROVASCULAR ACCIDENT [None]
  - CONFUSIONAL STATE [None]
  - FACIAL PARESIS [None]
  - FEELING ABNORMAL [None]
  - HEMIPARESIS [None]
  - NAUSEA [None]
  - RASH [None]
  - SOMNOLENCE [None]
  - SUBARACHNOID HAEMORRHAGE [None]
  - VOMITING [None]
